FAERS Safety Report 13380418 (Version 1)
Quarter: 2017Q1

REPORT INFORMATION
  Report Type: Spontaneous
  Country: CN (occurrence: CN)
  Receive Date: 20170329
  Receipt Date: 20170329
  Transmission Date: 20170429
  Serious: Yes (Death, Other)
  Sender: FDA-Public Use
  Company Number: CN-CIPLA LTD.-2017CN04619

PATIENT

DRUGS (3)
  1. APATINIB [Suspect]
     Active Substance: APATINIB
     Indication: ADENOCARCINOMA GASTRIC
     Dosage: 850 MG, QD
     Route: 048
  2. OXALIPLATIN. [Suspect]
     Active Substance: OXALIPLATIN
     Indication: ADENOCARCINOMA GASTRIC
     Dosage: UNK, FOR 1 CYCLE
     Route: 065
  3. TS-1 [Suspect]
     Active Substance: GIMERACIL\OTERACIL\TEGAFUR
     Indication: ADENOCARCINOMA GASTRIC
     Dosage: UNK, FOR 1 CYCLE
     Route: 065

REACTIONS (8)
  - Anastomotic stenosis [Unknown]
  - Disease progression [Unknown]
  - Treatment failure [Unknown]
  - Dysphagia [Unknown]
  - Anaemia [Recovering/Resolving]
  - Gastrointestinal disorder [Recovering/Resolving]
  - Lung infection [Fatal]
  - Gastrointestinal haemorrhage [Unknown]

NARRATIVE: CASE EVENT DATE: 201511
